FAERS Safety Report 17019756 (Version 1)
Quarter: 2019Q4

REPORT INFORMATION
  Report Type: Spontaneous
  Country: US (occurrence: US)
  Receive Date: 20191112
  Receipt Date: 20191112
  Transmission Date: 20200122
  Serious: Yes (Hospitalization)
  Sender: FDA-Public Use
  Company Number: US-BTG-201900058

PATIENT
  Age: 17 Year
  Sex: Male

DRUGS (5)
  1. CROFAB [Suspect]
     Active Substance: CROTALIDAE POLYVALENT IMMUNE FAB (OVINE)
     Indication: SNAKE BITE
     Dosage: TOTAL 6 VIALS IN 250ML NORMAL SALINE AT 25-50 ML/HR FOR FIRST 10 MIN
     Route: 065
     Dates: start: 20190406, end: 20190406
  2. CROFAB [Suspect]
     Active Substance: CROTALIDAE POLYVALENT IMMUNE FAB (OVINE)
     Indication: SNAKE BITE
     Dosage: TOTAL 6 VIALS IN 250ML NORMAL SALINE AT 25-50 ML/HR FOR FIRST 10 MIN
     Route: 065
     Dates: start: 20190406, end: 20190406
  3. PEPCID [Concomitant]
     Active Substance: FAMOTIDINE
     Indication: PRODUCT USED FOR UNKNOWN INDICATION
     Route: 065
     Dates: start: 20190406
  4. SOLU-MEDROL [Concomitant]
     Active Substance: METHYLPREDNISOLONE SODIUM SUCCINATE
     Indication: PRODUCT USED FOR UNKNOWN INDICATION
     Route: 042
     Dates: start: 20190406
  5. BENADRYL [Concomitant]
     Active Substance: DIPHENHYDRAMINE HYDROCHLORIDE
     Indication: PRODUCT USED FOR UNKNOWN INDICATION
     Route: 065
     Dates: start: 20190406

REACTIONS (5)
  - Eye swelling [Recovering/Resolving]
  - Urticaria [Unknown]
  - Rash [Recovering/Resolving]
  - Hypersensitivity [Recovering/Resolving]
  - Erythema [Unknown]

NARRATIVE: CASE EVENT DATE: 20190406
